FAERS Safety Report 24448185 (Version 1)
Quarter: 2024Q4

REPORT INFORMATION
  Report Type: Report from Study
  Country: US (occurrence: US)
  Receive Date: 20241016
  Receipt Date: 20241016
  Transmission Date: 20250115
  Serious: Yes (Other)
  Sender: ABBVIE
  Company Number: US-ABBVIE-5964279

PATIENT
  Age: 80 Year
  Sex: Male

DRUGS (2)
  1. SKYRIZI [Suspect]
     Active Substance: RISANKIZUMAB-RZAA
     Indication: Psoriasis
     Route: 058
     Dates: end: 20240812
  2. SKYRIZI [Suspect]
     Active Substance: RISANKIZUMAB-RZAA
     Dosage: LAST SKYRIZI INJECTION 03 OCT 2024
     Route: 058
     Dates: start: 2024

REACTIONS (1)
  - Cardiac operation [Recovering/Resolving]

NARRATIVE: CASE EVENT DATE: 20240812
